FAERS Safety Report 18915907 (Version 3)
Quarter: 2024Q3

REPORT INFORMATION
  Report Type: Report from Study
  Country: FR (occurrence: FR)
  Receive Date: 20210219
  Receipt Date: 20240906
  Transmission Date: 20241017
  Serious: Yes (Other)
  Sender: ROCHE
  Company Number: FR-SEATTLE GENETICS-2021SGN00338

PATIENT
  Age: 66 Year
  Sex: Female
  Weight: 63.0 kg

DRUGS (3)
  1. CAPECITABINE [Suspect]
     Active Substance: CAPECITABINE
     Indication: Breast cancer
     Dosage: 1000 MG, BID
     Route: 048
  2. TRASTUZUMAB [Suspect]
     Active Substance: TRASTUZUMAB
     Indication: Breast cancer
     Dosage: 6 MG/KG, Q3WEEKS
     Route: 041
  3. TUCATINIB [Suspect]
     Active Substance: TUCATINIB
     Indication: Breast cancer
     Dosage: 300 MG BID?MOST RECENT DOSE OF TUCATINIB WAS RECEIVED ON 12/JAN/2021.
     Route: 048
     Dates: start: 20210105

REACTIONS (1)
  - Mucosal inflammation [Recovering/Resolving]

NARRATIVE: CASE EVENT DATE: 20210112
